FAERS Safety Report 14800685 (Version 1)
Quarter: 2018Q2

REPORT INFORMATION
  Report Type: Report from Study
  Country: IT (occurrence: IT)
  Receive Date: 20180424
  Receipt Date: 20180424
  Transmission Date: 20180711
  Serious: Yes (Hospitalization)
  Sender: FDA-Public Use
  Company Number: IT-SA-2018SA106473

PATIENT
  Age: 43 Year
  Sex: Male

DRUGS (3)
  1. ZOLPIDEM TARTRATE. [Suspect]
     Active Substance: ZOLPIDEM TARTRATE
     Indication: INTENTIONAL SELF-INJURY
     Route: 048
     Dates: start: 20171110, end: 20171110
  2. CITALOPRAM HYDROBROMIDE. [Concomitant]
     Active Substance: CITALOPRAM HYDROBROMIDE
  3. TALOFEN [Concomitant]
     Active Substance: PROMAZINE HYDROCHLORIDE

REACTIONS (6)
  - Blood creatine phosphokinase increased [Unknown]
  - Fall [Unknown]
  - Injury [Unknown]
  - Tachycardia [Unknown]
  - Drug abuse [Unknown]
  - Myoglobin blood increased [Unknown]

NARRATIVE: CASE EVENT DATE: 20171110
